FAERS Safety Report 5108724-8 (Version None)
Quarter: 2006Q3

REPORT INFORMATION
  Report Type: 
  Country: None (occurrence: None)
  Receive Date: 20060731
  Receipt Date: 20060607
  Transmission Date: 20061208
  Serious: No
  Sender: FDA-Public Use
  Company Number: 2006PV015174

PATIENT
  Age: 65 Year
  Sex: Female
  Weight: 90.7194 kg

DRUGS (5)
  1. BYETTA [Suspect]
     Indication: DIABETES MELLITUS NON-INSULIN-DEPENDENT
     Dosage: SEE IMAGE
     Route: 058
     Dates: start: 20060501, end: 20060531
  2. BYETTA [Suspect]
     Indication: DIABETES MELLITUS NON-INSULIN-DEPENDENT
     Dosage: SEE IMAGE
     Route: 058
     Dates: start: 20060601
  3. GLUCOTROL XL [Concomitant]
  4. GLUCOPHAGE [Concomitant]
  5. AVANDIA [Concomitant]

REACTIONS (5)
  - ACCIDENTAL OVERDOSE [None]
  - ASTHENIA [None]
  - BLOOD GLUCOSE DECREASED [None]
  - BLOOD GLUCOSE INCREASED [None]
  - NAUSEA [None]
